FAERS Safety Report 18198578 (Version 13)
Quarter: 2022Q2

REPORT INFORMATION
  Report Type: Other
  Country: GB (occurrence: GB)
  Receive Date: 20200826
  Receipt Date: 20220416
  Transmission Date: 20220721
  Serious: Yes (Hospitalization, Other)
  Sender: FDA-Public Use
  Company Number: GB-MACLEODS PHARMACEUTICALS US LTD-MAC2020027790

PATIENT

DRUGS (46)
  1. TRAMADOL [Suspect]
     Active Substance: TRAMADOL
     Indication: Abdominal pain
     Dosage: UNK UNK, QD, DOSAGE FORM UNSPECIFIED
     Route: 065
  2. TRAMADOL [Suspect]
     Active Substance: TRAMADOL
     Dosage: 50 MILLIGRAM, TID (150 MG, QD 50 MG)
     Route: 048
     Dates: start: 200904, end: 200909
  3. TRAMADOL [Suspect]
     Active Substance: TRAMADOL
     Dosage: 50 MILLIGRAM, QD (DROPS)
     Route: 065
     Dates: start: 200909, end: 201011
  4. TRAMADOL [Suspect]
     Active Substance: TRAMADOL
     Dosage: 100 MILLIGRAM, QID, 400 MG QD
     Route: 048
     Dates: start: 200910, end: 200911
  5. TRAMADOL [Suspect]
     Active Substance: TRAMADOL
     Dosage: 400 MILLIGRAM, QD
     Route: 048
     Dates: start: 200910, end: 200911
  6. TRAMADOL [Suspect]
     Active Substance: TRAMADOL
     Dosage: 450 MILLIGRAM, QD (150 MG, TID (50 MG, 3/DAY))
     Route: 065
     Dates: start: 200904, end: 200909
  7. TRAMADOL [Suspect]
     Active Substance: TRAMADOL
     Dosage: 400 MILLIGRAM, QD
     Route: 048
     Dates: start: 200904, end: 200909
  8. TRAMADOL [Suspect]
     Active Substance: TRAMADOL
     Dosage: UNK
     Route: 065
  9. PREGABALIN [Suspect]
     Active Substance: PREGABALIN
     Indication: Product used for unknown indication
     Dosage: UNK, DOSAGE FORM: UNSPECIFIED
     Route: 065
  10. PREGABALIN [Suspect]
     Active Substance: PREGABALIN
     Dosage: UNK
     Route: 048
  11. DOMPERIDONE [Suspect]
     Active Substance: DOMPERIDONE
     Indication: Product used for unknown indication
     Dosage: 10 MILLIGRAM, TID, UP TO THREE TIMES A DAY, FILM-COATED TABLET
     Route: 048
  12. PRUCALOPRIDE SUCCINATE [Suspect]
     Active Substance: PRUCALOPRIDE SUCCINATE
     Indication: Product used for unknown indication
     Dosage: 2 MILLIGRAM, QD, PRUCALOPRIDE SUCCINATE (555 (PRUCALOPRIDE))
     Route: 048
  13. AMITRIPTYLINE [Suspect]
     Active Substance: AMITRIPTYLINE
     Indication: Product used for unknown indication
     Dosage: 100 MILLIGRAM, QD
     Route: 048
  14. AMITRIPTYLINE [Suspect]
     Active Substance: AMITRIPTYLINE
     Dosage: 100 MILLIGRAM, QD, AT NIGHT
     Route: 048
  15. AMITRIPTYLINE [Suspect]
     Active Substance: AMITRIPTYLINE
     Dosage: 100 MILLIGRAM, QD, AT NIGHT,
     Route: 048
  16. BETAHISTINE [Suspect]
     Active Substance: BETAHISTINE
     Indication: Product used for unknown indication
     Dosage: 24 MILLIGRAM, QD, DOSAGE FORM: UNSPECIFIED
     Route: 048
  17. COCODAMOL [Suspect]
     Active Substance: ACETAMINOPHEN\CODEINE PHOSPHATE
     Indication: Product used for unknown indication
     Dosage: 8 DOSAGE FORM, QID, EFFERVESCENT TABLET
     Route: 048
  18. COCODAMOL [Suspect]
     Active Substance: ACETAMINOPHEN\CODEINE PHOSPHATE
     Dosage: 8 DOSAGE FORM, QID, 30MG/500MG, CAPSULE (ZAPAIN)
     Route: 048
  19. COCODAMOL [Suspect]
     Active Substance: ACETAMINOPHEN\CODEINE PHOSPHATE
     Dosage: 32 DOSAGE FORM, QID, ZAPAIN
     Route: 048
  20. COCODAMOL [Suspect]
     Active Substance: ACETAMINOPHEN\CODEINE PHOSPHATE
     Dosage: 32 DOSAGE FORM, QD (32 DOSAGE FORM, QD, 30MG/500MG, 8 DF, QID, TABLET)
     Route: 048
  21. CYCLIZINE [Suspect]
     Active Substance: CYCLIZINE
     Indication: Vomiting
     Dosage: 150 MILLIGRAM, QD (50 MG, 3/DAY)
     Route: 065
  22. CYCLIZINE [Suspect]
     Active Substance: CYCLIZINE
     Indication: Nausea
     Dosage: 50 MILLIGRAM, QD
     Route: 065
  23. CYCLIZINE [Suspect]
     Active Substance: CYCLIZINE
     Indication: Product used for unknown indication
     Dosage: 8 DOSAGE FORM, 50 MG, 3/DAY
     Route: 048
  24. CYCLIZINE [Suspect]
     Active Substance: CYCLIZINE
     Dosage: UNK, DOSAGE FORM: UNSPECIFIED
     Route: 065
  25. CYCLIZINE [Suspect]
     Active Substance: CYCLIZINE
     Dosage: 100 MILLIGRAM, TID
     Route: 065
  26. CYCLIZINE [Suspect]
     Active Substance: CYCLIZINE
     Dosage: 50 MILLIGRAM, TID (50 MG, 3/DAY, 8 DOSAGE FORM, 1X/DAY:QD)
  27. GABAPENTIN [Suspect]
     Active Substance: GABAPENTIN
     Indication: Product used for unknown indication
     Dosage: 3600 MILLIGRAM, QD
     Route: 048
  28. GABAPENTIN [Suspect]
     Active Substance: GABAPENTIN
     Dosage: 900 MILLIGRAM, QID
     Route: 048
  29. METOCLOPRAMIDE [Suspect]
     Active Substance: METOCLOPRAMIDE
     Indication: Vomiting
     Dosage: 10 MILLIGRAM, TID IN 8 HOURS, 30 MG, QD (TABLET)
     Route: 048
  30. METOCLOPRAMIDE [Suspect]
     Active Substance: METOCLOPRAMIDE
     Indication: Abdominal pain
     Dosage: 50 MILLIGRAM, QD
     Route: 048
  31. LANSOPRAZOLE [Concomitant]
     Active Substance: LANSOPRAZOLE
     Indication: Product used for unknown indication
     Dosage: 30 MILLIGRAM, BID ( GASTRO-RESISTANT CAPSULE)
     Route: 048
  32. OMEPRAZOLE [Concomitant]
     Active Substance: OMEPRAZOLE
     Indication: Dyspepsia
     Dosage: 40 MILLIGRAM, QD, 1 IN 1 DAYS
     Route: 065
  33. OMEPRAZOLE [Concomitant]
     Active Substance: OMEPRAZOLE
     Dosage: 40 MILLIGRAM, QD
     Route: 065
  34. OMEPRAZOLE [Concomitant]
     Active Substance: OMEPRAZOLE
     Dosage: UNK, TABLET
     Route: 065
  35. IBUPROFEN [Concomitant]
     Active Substance: IBUPROFEN
     Indication: Abdominal pain
     Dosage: 400 MILLIGRAM, TID, EVERY 8 HOURS
     Route: 065
  36. IBUPROFEN [Concomitant]
     Active Substance: IBUPROFEN
     Dosage: 400 MILLIGRAM, TID, EVERY 8 HOURS
     Route: 065
  37. IBUPROFEN [Concomitant]
     Active Substance: IBUPROFEN
     Dosage: 400 MILLIGRAM (ORAL LIQUID)
     Route: 065
  38. IBUPROFEN [Concomitant]
     Active Substance: IBUPROFEN
     Dosage: 400 MILLIGRAM (ORAL LIQUID)
     Route: 065
  39. IBUPROFEN [Concomitant]
     Active Substance: IBUPROFEN
     Dosage: 400 MILLIGRAM (ORAL LIQUID)
     Route: 065
  40. HYDROCORTISONE [Concomitant]
     Active Substance: HYDROCORTISONE
     Indication: Product used for unknown indication
     Dosage: UNK
     Route: 048
  41. HYDROCORTISONE [Concomitant]
     Active Substance: HYDROCORTISONE
     Dosage: 450 MILLIGRAM, QD, 150 MG, TID
     Route: 048
     Dates: start: 200904, end: 200909
  42. HYDROCORTISONE [Concomitant]
     Active Substance: HYDROCORTISONE
     Dosage: 1600 MILLIGRAM, QD, 400 MG, QID
     Route: 048
     Dates: start: 200910, end: 200911
  43. HYDROCORTISONE [Concomitant]
     Active Substance: HYDROCORTISONE
     Dosage: 150 MILLIGRAM, TID
     Route: 048
     Dates: start: 200904, end: 200909
  44. SUMATRIPTAN [Concomitant]
     Active Substance: SUMATRIPTAN
     Indication: Migraine
     Dosage: 50 MILLIGRAM, QD, 1 IN 1 DAYS
     Route: 065
  45. SUMATRIPTAN [Concomitant]
     Active Substance: SUMATRIPTAN
     Dosage: 50 MILLIGRAM
     Route: 065
  46. SUMATRIPTAN [Concomitant]
     Active Substance: SUMATRIPTAN
     Dosage: 50 MILLIGRAM
     Route: 065

REACTIONS (10)
  - Pituitary tumour benign [Recovering/Resolving]
  - Hyperprolactinaemia [Recovering/Resolving]
  - Vision blurred [Unknown]
  - Secondary adrenocortical insufficiency [Recovered/Resolved]
  - Lethargy [Recovered/Resolved]
  - Adrenal insufficiency [Recovered/Resolved]
  - Abdominal pain [Recovered/Resolved]
  - Dizziness [Recovered/Resolved]
  - Headache [Recovered/Resolved]
  - Vomiting [Recovered/Resolved]

NARRATIVE: CASE EVENT DATE: 20091101
